FAERS Safety Report 5638350-3 (Version None)
Quarter: 2008Q1

REPORT INFORMATION
  Report Type: 
  Country: None (occurrence: None)
  Receive Date: 20080226
  Receipt Date: 20080214
  Transmission Date: 20080703
  Serious: Yes (Hospitalization, Other)
  Sender: FDA-Public Use
  Company Number: US-AMGEN-STX265593

PATIENT
  Sex: Female

DRUGS (4)
  1. ENBREL [Suspect]
     Indication: RHEUMATOID ARTHRITIS
     Route: 058
     Dates: start: 20000801
  2. ENBREL [Suspect]
     Indication: MIXED CONNECTIVE TISSUE DISEASE
  3. PLAQUENIL [Concomitant]
     Route: 048
     Dates: start: 20000101
  4. METHOTREXATE [Concomitant]
     Route: 048
     Dates: start: 20000101

REACTIONS (16)
  - ANKYLOSING SPONDYLITIS [None]
  - DEFORMITY [None]
  - DYSPNOEA [None]
  - INFECTION [None]
  - INJECTION SITE BRUISING [None]
  - INJECTION SITE PAIN [None]
  - INTERVERTEBRAL DISC DEGENERATION [None]
  - LOCALISED INFECTION [None]
  - MIXED CONNECTIVE TISSUE DISEASE [None]
  - MOBILITY DECREASED [None]
  - MUSCLE STRAIN [None]
  - NAIL INFECTION [None]
  - PULMONARY FIBROSIS [None]
  - RHINITIS [None]
  - SCLERODERMA [None]
  - TENDON INJURY [None]
